FAERS Safety Report 9368573 (Version 1)
Quarter: 2013Q2

REPORT INFORMATION
  Report Type: Spontaneous
  Country: FR (occurrence: FR)
  Receive Date: 20130626
  Receipt Date: 20130626
  Transmission Date: 20140414
  Serious: Yes (Hospitalization, Other)
  Sender: FDA-Public Use
  Company Number: FR-AMGEN-FRASP2013044492

PATIENT
  Age: 76 Year
  Sex: Female

DRUGS (8)
  1. ENBREL [Suspect]
     Indication: PSORIASIS
     Dosage: 50 MG, WEEKLY
     Route: 058
     Dates: start: 2009
  2. GLICLAZIDE [Concomitant]
     Indication: TYPE 2 DIABETES MELLITUS
     Dosage: UNK
     Route: 048
  3. ISOPTIN                            /00014302/ [Concomitant]
     Dosage: UNK
     Route: 048
  4. LASILIX                            /00032601/ [Concomitant]
     Indication: RENAL FAILURE
     Dosage: UNK
     Route: 048
  5. VALSARTAN [Concomitant]
     Indication: HYPERTENSION
     Dosage: UNK
     Route: 048
  6. RILMENIDINE PHOSPHATE [Concomitant]
     Indication: HYPERTENSION
     Dosage: UNK
     Route: 048
  7. CRESTOR [Concomitant]
     Indication: DYSLIPIDAEMIA
     Dosage: UNK
     Route: 048
  8. KARDEGIC [Concomitant]
     Indication: PLATELET AGGREGATION INHIBITION
     Dosage: UNK
     Route: 048

REACTIONS (3)
  - Ischaemic stroke [Recovered/Resolved with Sequelae]
  - VIIth nerve paralysis [Unknown]
  - Dysarthria [Unknown]
